FAERS Safety Report 10345868 (Version 3)
Quarter: 2016Q2

REPORT INFORMATION
  Report Type: Report from Study
  Country: IL (occurrence: IL)
  Receive Date: 20140728
  Receipt Date: 20160512
  Transmission Date: 20160815
  Serious: Yes (Hospitalization)
  Sender: FDA-Public Use
  Company Number: PHHY2014IL091316

PATIENT
  Age: 20 Year
  Sex: Female
  Weight: 48 kg

DRUGS (2)
  1. LDK378 [Suspect]
     Active Substance: CERITINIB
     Indication: LUNG NEOPLASM MALIGNANT
     Dosage: 750 MG, QD
     Route: 048
     Dates: start: 20140701
  2. LDK378 [Suspect]
     Active Substance: CERITINIB
     Dosage: 600 MG, QD
     Route: 048

REACTIONS (12)
  - Pleuritic pain [Not Recovered/Not Resolved]
  - General physical condition abnormal [Unknown]
  - Pain [Unknown]
  - Wound [Unknown]
  - Emotional disorder [Unknown]
  - Pericarditis [Not Recovered/Not Resolved]
  - Dyspnoea [Unknown]
  - Pericardial effusion [Not Recovered/Not Resolved]
  - Feeding disorder [Unknown]
  - Skin lesion [Unknown]
  - Feeling abnormal [Unknown]
  - Movement disorder [Unknown]

NARRATIVE: CASE EVENT DATE: 20140722
